FAERS Safety Report 10380454 (Version 1)
Quarter: 2014Q3

REPORT INFORMATION
  Report Type: Spontaneous
  Country: US (occurrence: None)
  Receive Date: 20140812
  Receipt Date: 20140812
  Transmission Date: 20150326
  Serious: No
  Sender: FDA-Public Use
  Company Number: None

PATIENT
  Age: 43 Year
  Sex: Female
  Weight: 56.7 kg

DRUGS (1)
  1. DEXILANT [Suspect]
     Active Substance: DEXLANSOPRAZOLE
     Indication: EROSIVE OESOPHAGITIS
     Dosage: 1 PILL ONCE DAILY TAKEN BY MOUTH
     Route: 048
     Dates: start: 20140724, end: 20140728

REACTIONS (5)
  - Wheezing [None]
  - Cough [None]
  - Condition aggravated [None]
  - Gastrooesophageal reflux disease [None]
  - Erosive oesophagitis [None]

NARRATIVE: CASE EVENT DATE: 20140728
